FAERS Safety Report 21751588 (Version 3)
Quarter: 2023Q2

REPORT INFORMATION
  Report Type: Report from Study
  Country: US (occurrence: US)
  Receive Date: 20221220
  Receipt Date: 20230501
  Transmission Date: 20230721
  Serious: Yes (Other)
  Sender: FDA-Public Use
  Company Number: US-002147023-NVSC2022US288881

PATIENT
  Age: 32 Year
  Sex: Male
  Weight: 83 kg

DRUGS (2)
  1. COSENTYX [Suspect]
     Active Substance: SECUKINUMAB
     Indication: Psoriasis
     Dosage: 350 MG, QMO
     Route: 058
     Dates: start: 20211212
  2. COSENTYX [Suspect]
     Active Substance: SECUKINUMAB
     Dosage: 300 MG, QMO
     Route: 058
     Dates: start: 20220418

REACTIONS (6)
  - Pulmonary congestion [Recovering/Resolving]
  - Psoriasis [Unknown]
  - Nasal congestion [Recovering/Resolving]
  - COVID-19 [Unknown]
  - Cough [Recovering/Resolving]
  - Product use issue [Unknown]

NARRATIVE: CASE EVENT DATE: 20211212
